FAERS Safety Report 8200179-X (Version None)
Quarter: 2012Q1

REPORT INFORMATION
  Report Type: 
  Country: None (occurrence: None)
  Receive Date: 20120309
  Receipt Date: 20120309
  Transmission Date: 20120608
  Serious: Yes (Other)
  Sender: FDA-Public Use
  Company Number: None

PATIENT
  Sex: Female
  Weight: 83.4619 kg

DRUGS (1)
  1. VAGIFEM [Suspect]
     Indication: VULVOVAGINAL DRYNESS
     Dosage: 25MCG 3X WEEKLY VAGINALLY
     Route: 067
     Dates: start: 20040601

REACTIONS (11)
  - NAUSEA [None]
  - VOMITING [None]
  - SYNCOPE [None]
  - CHEST DISCOMFORT [None]
  - DYSPNOEA [None]
  - LOSS OF CONSCIOUSNESS [None]
  - CHEST PAIN [None]
  - HEADACHE [None]
  - VISION BLURRED [None]
  - COLD SWEAT [None]
  - TREMOR [None]
